FAERS Safety Report 8250401-9 (Version None)
Quarter: 2012Q2

REPORT INFORMATION
  Report Type: 
  Country: None (occurrence: None)
  Receive Date: 20120402
  Receipt Date: 20120326
  Transmission Date: 20120825
  Serious: Yes (Other)
  Sender: FDA-Public Use
  Company Number: US-JNJFOC-20120103833

PATIENT
  Sex: Female
  Weight: 77.11 kg

DRUGS (26)
  1. RISPERDAL [Suspect]
     Route: 048
     Dates: start: 20110101
  2. RISPERDAL [Suspect]
     Dosage: 1/2 OF 0.25MG TABLET
     Route: 048
     Dates: end: 20120101
  3. ATENOLOL [Concomitant]
     Indication: CARDIAC DISORDER
     Route: 048
  4. VALIUM [Concomitant]
     Dosage: IN MORNING AT 9 AM
     Route: 048
  5. ESTRADIOL [Concomitant]
     Route: 067
  6. ELMIRON [Suspect]
     Route: 048
     Dates: start: 20111012
  7. ELMIRON [Suspect]
     Indication: CYSTITIS INTERSTITIAL
     Route: 048
     Dates: start: 20111021
  8. ELMIRON [Suspect]
     Dosage: 100MG CAPSULE IN THE MORNING
     Route: 048
     Dates: start: 20110101
  9. RISPERDAL [Suspect]
     Indication: ANXIETY
     Route: 048
     Dates: start: 20110628
  10. TENORMIN [Concomitant]
     Route: 065
  11. ELMIRON [Suspect]
     Indication: BLADDER PAIN
     Route: 048
     Dates: start: 20111021
  12. PROTONIX [Suspect]
     Indication: GASTRIC DISORDER
     Route: 065
     Dates: end: 20111223
  13. VALIUM [Concomitant]
     Dosage: AT 10 PM NIGHT
     Route: 048
     Dates: start: 20090101
  14. ELMIRON [Suspect]
     Route: 048
     Dates: start: 20110101, end: 20110101
  15. PROTONIX [Suspect]
     Route: 065
  16. VALIUM [Concomitant]
     Indication: ANXIETY
     Dosage: IN NOON
     Route: 048
     Dates: start: 20090101
  17. PRILOSEC [Concomitant]
     Route: 065
  18. PEPCID [Concomitant]
     Route: 065
  19. ELMIRON [Suspect]
     Dosage: 2 100MG CAPSULES IN THE NIGHT
     Route: 048
     Dates: start: 20110101
  20. ELMIRON [Suspect]
     Route: 048
     Dates: start: 20110101, end: 20110101
  21. ELMIRON [Suspect]
     Route: 048
     Dates: start: 20111012
  22. RISPERDAL [Suspect]
     Dosage: 1/4 OF 0.25MG TABLET
     Route: 048
  23. PROTONIX [Suspect]
     Route: 065
     Dates: end: 20111223
  24. ELMIRON [Suspect]
     Dosage: 100MG CAPSULE IN THE MORNING
     Route: 048
     Dates: start: 20110101
  25. ELMIRON [Suspect]
     Dosage: 2 100MG CAPSULES IN THE NIGHT
     Route: 048
     Dates: start: 20110101
  26. PROTONIX [Suspect]
     Indication: GASTROOESOPHAGEAL REFLUX DISEASE
     Route: 065

REACTIONS (10)
  - GASTROOESOPHAGEAL REFLUX DISEASE [None]
  - INCORRECT DOSE ADMINISTERED [None]
  - RASH PAPULAR [None]
  - TINNITUS [None]
  - DRY MOUTH [None]
  - DYSPHAGIA [None]
  - DYSGEUSIA [None]
  - DYSPHONIA [None]
  - GINGIVITIS [None]
  - ORAL PAIN [None]
